FAERS Safety Report 19675987 (Version 1)
Quarter: 2021Q3

REPORT INFORMATION
  Report Type: Spontaneous
  Country: US (occurrence: US)
  Receive Date: 20210809
  Receipt Date: 20210809
  Transmission Date: 20211014
  Serious: No
  Sender: FDA-Public Use
  Company Number: US-TOLMAR, INC.-21US027952

PATIENT
  Sex: Male

DRUGS (1)
  1. ELIGARD [Suspect]
     Active Substance: LEUPROLIDE ACETATE
     Indication: PRODUCT USED FOR UNKNOWN INDICATION
     Dosage: UNK

REACTIONS (6)
  - Intercepted product preparation error [Unknown]
  - Skin haemorrhage [Recovered/Resolved]
  - Syringe issue [Unknown]
  - Occupational exposure to product [Unknown]
  - Injury associated with device [Unknown]
  - Skin laceration [Unknown]

NARRATIVE: CASE EVENT DATE: 20210609
